FAERS Safety Report 7538186-2 (Version None)
Quarter: 2011Q2

REPORT INFORMATION
  Report Type: 
  Country: None (occurrence: None)
  Receive Date: 20110609
  Receipt Date: 20110609
  Transmission Date: 20111010
  Serious: Yes (Other)
  Sender: FDA-Public Use
  Company Number: FR-PFIZER INC-2011116107

PATIENT
  Age: 65 Year
  Sex: Male

DRUGS (6)
  1. VFEND [Suspect]
     Indication: ASPERGILLOSIS
     Dosage: 400 MG/DAY
     Route: 048
     Dates: start: 20080129
  2. EVEROLIMUS [Suspect]
     Dosage: UNK
     Dates: start: 20100101
  3. PREDNISONE [Suspect]
     Dosage: UNK
     Dates: start: 20060101
  4. NEORAL [Suspect]
     Dosage: UNK
     Dates: start: 20060101, end: 20100101
  5. CELLCEPT [Suspect]
     Dosage: UNK
     Dates: start: 20060101
  6. VFEND [Suspect]
     Dosage: UNK
     Dates: start: 20070101

REACTIONS (1)
  - ACTINIC KERATOSIS [None]
